FAERS Safety Report 9724875 (Version 4)
Quarter: 2014Q2

REPORT INFORMATION
  Report Type: Spontaneous
  Country: US (occurrence: US)
  Receive Date: 20131202
  Receipt Date: 20140502
  Transmission Date: 20141212
  Serious: Yes (Death, Hospitalization)
  Sender: FDA-Public Use
  Company Number: US-B.I. PHARMACEUTICALS,INC./RIDGEFIELD-2013-BI-39949BP

PATIENT
  Age: 86 Year
  Sex: Female
  Weight: 70.3 kg

DRUGS (17)
  1. PRADAXA [Suspect]
     Indication: ANTICOAGULANT THERAPY
     Dosage: 150 MG
     Route: 048
     Dates: start: 20110715, end: 20111225
  2. LASIX [Concomitant]
     Dosage: 20 MG
     Route: 048
     Dates: start: 2004, end: 201107
  3. NEXIUM [Concomitant]
     Route: 065
     Dates: start: 2004, end: 201107
  4. ATENOLOL [Concomitant]
     Route: 065
     Dates: start: 2004, end: 201107
  5. CRESTOR [Concomitant]
     Route: 065
     Dates: start: 2004, end: 201107
  6. NECLIZINE [Concomitant]
     Route: 065
     Dates: start: 2004, end: 201107
  7. FOSAMAX [Concomitant]
     Route: 065
     Dates: start: 2004, end: 201107
  8. PRAVACHOL [Concomitant]
     Dosage: 80 MG
     Route: 048
  9. REMERON [Concomitant]
     Dosage: 15 MG
     Route: 048
  10. AMIODARONE [Concomitant]
     Dosage: 100 MG
     Route: 048
  11. ASA [Concomitant]
     Route: 065
  12. OSCAL [Concomitant]
     Route: 065
  13. TYLENOL [Concomitant]
     Route: 065
  14. COREG [Concomitant]
     Route: 065
  15. METOPROLOL [Concomitant]
     Dosage: 50 MG
     Route: 048
  16. RESTASIS [Concomitant]
     Route: 065
  17. MORTAZAPINE [Concomitant]
     Route: 065

REACTIONS (8)
  - Haemorrhage [Fatal]
  - Shock haemorrhagic [Fatal]
  - Cardiac arrest [Fatal]
  - Myocardial infarction [Unknown]
  - Embolism arterial [Unknown]
  - Skin haemorrhage [Unknown]
  - Sick sinus syndrome [Unknown]
  - Anaemia [Unknown]
